FAERS Safety Report 24131438 (Version 1)
Quarter: 2024Q3

REPORT INFORMATION
  Report Type: Spontaneous
  Country: US (occurrence: None)
  Receive Date: 20240723
  Receipt Date: 20240723
  Transmission Date: 20241016
  Serious: Yes (Death)
  Sender: Public
  Company Number: None

PATIENT
  Age: 66 Year
  Sex: Male
  Weight: 76.5 kg

DRUGS (5)
  1. KEYTRUDA [Suspect]
     Active Substance: PEMBROLIZUMAB
     Indication: Lung adenocarcinoma stage IV
     Route: 042
     Dates: start: 20240716, end: 20240716
  2. KEYTRUDA [Suspect]
     Active Substance: PEMBROLIZUMAB
     Indication: Non-small cell lung cancer metastatic
  3. SUBOXONE [Concomitant]
  4. WARFARIN [Concomitant]
  5. steroids inhalers [Concomitant]

REACTIONS (15)
  - Treatment delayed [None]
  - General physical health deterioration [None]
  - Cardiac arrest [None]
  - Gastrointestinal haemorrhage [None]
  - Renal injury [None]
  - Liver injury [None]
  - Peripheral swelling [None]
  - Joint swelling [None]
  - Fatigue [None]
  - Dehydration [None]
  - Hypopnoea [None]
  - Moaning [None]
  - Heart rate decreased [None]
  - Victim of abuse [None]
  - Victim of crime [None]

NARRATIVE: CASE EVENT DATE: 20240719
